FAERS Safety Report 16568959 (Version 1)
Quarter: 2019Q3

REPORT INFORMATION
  Report Type: Report from Study
  Country: DE (occurrence: DE)
  Receive Date: 20190713
  Receipt Date: 20190713
  Transmission Date: 20191004
  Serious: Yes (Hospitalization)
  Sender: FDA-Public Use
  Company Number: DE-UCBSA-044430

PATIENT
  Age: 27 Year
  Sex: Female
  Weight: 57.6 kg

DRUGS (4)
  1. CEFUROXIM [Concomitant]
     Active Substance: CEFUROXIME
     Indication: BRONCHITIS
     Dosage: 250 MG, ONCE DAILY (QD)
     Route: 048
     Dates: start: 20111017, end: 20111023
  2. PREDNISOLON [Concomitant]
     Active Substance: PREDNISOLONE
     Indication: AXIAL SPONDYLOARTHRITIS
     Dosage: 5 MG, ONCE DAILY (QD)
     Route: 048
     Dates: start: 20110919, end: 20111023
  3. CERTOLIZUMAB PEGOL VS PLACEBO [Suspect]
     Active Substance: CERTOLIZUMAB PEGOL
     Indication: AXIAL SPONDYLOARTHRITIS
     Dosage: NO. OF DOSES RECEIVED: 15
     Route: 058
     Dates: start: 20110314, end: 20110926
  4. PREDNISOLON [Concomitant]
     Active Substance: PREDNISOLONE
     Dosage: 10 MG, ONCE DAILY (QD)
     Route: 048
     Dates: start: 20111024, end: 20111024

REACTIONS (1)
  - Pneumonia [Recovered/Resolved]

NARRATIVE: CASE EVENT DATE: 20111024
